FAERS Safety Report 24847499 (Version 4)
Quarter: 2025Q2

REPORT INFORMATION
  Report Type: Spontaneous
  Country: US (occurrence: US)
  Receive Date: 20250116
  Receipt Date: 20250416
  Transmission Date: 20250716
  Serious: Yes (Other)
  Sender: CIPLA
  Company Number: US-CIPLA LTD.-2025US00155

PATIENT

DRUGS (1)
  1. SERTRALINE [Suspect]
     Active Substance: SERTRALINE HYDROCHLORIDE
     Route: 063

REACTIONS (2)
  - Haematochezia [Not Recovered/Not Resolved]
  - Exposure via breast milk [Unknown]

NARRATIVE: CASE EVENT DATE: 20250101
